FAERS Safety Report 22522162 (Version 2)
Quarter: 2023Q2

REPORT INFORMATION
  Report Type: Report from Study
  Country: MX (occurrence: MX)
  Receive Date: 20230605
  Receipt Date: 20230606
  Transmission Date: 20230721
  Serious: Yes (Life-Threatening, Other)
  Sender: FDA-Public Use
  Company Number: MX-002147023-NVSC2023MX124978

PATIENT
  Sex: Female
  Weight: 60.5 kg

DRUGS (2)
  1. KISQALI [Suspect]
     Active Substance: RIBOCICLIB
     Indication: Breast cancer
     Dosage: 3 DOSAGE FORM, QD (27 DAYS AGO)
     Route: 048
  2. KISQALI [Suspect]
     Active Substance: RIBOCICLIB
     Dosage: 3 DOSAGE FORM, QD (ON SATURDAY SHE STARTED AGAIN WITH THE 21 DAYS)
     Route: 065

REACTIONS (20)
  - Feeling abnormal [Unknown]
  - Neoplasm malignant [Unknown]
  - Blindness [Unknown]
  - Thyroid disorder [Unknown]
  - Toothache [Unknown]
  - Fibrosis [Unknown]
  - Hormone level abnormal [Recovering/Resolving]
  - Tooth loss [Unknown]
  - Fall [Unknown]
  - Blood pressure increased [Unknown]
  - Weight increased [Unknown]
  - Increased appetite [Unknown]
  - Infection [Recovering/Resolving]
  - Wound [Recovering/Resolving]
  - Acne [Recovering/Resolving]
  - Insomnia [Unknown]
  - Dizziness [Unknown]
  - Diarrhoea [Unknown]
  - Nausea [Unknown]
  - Alopecia [Unknown]
